FAERS Safety Report 9089206 (Version 1)
Quarter: 2013Q1

REPORT INFORMATION
  Report Type: Report from Study
  Country: US (occurrence: US)
  Receive Date: 20130218
  Receipt Date: 20130218
  Transmission Date: 20140127
  Serious: No
  Sender: FDA-Public Use
  Company Number: US-ABBOTT-12P-163-0938049-00

PATIENT
  Sex: Female
  Weight: 56.75 kg

DRUGS (2)
  1. SIMCOR [Suspect]
     Indication: HIGH DENSITY LIPOPROTEIN INCREASED
     Dosage: 500/UNK DAILY
     Dates: start: 201110
  2. SIMCOR [Suspect]
     Indication: LOW DENSITY LIPOPROTEIN

REACTIONS (3)
  - Rash [Unknown]
  - Flushing [Not Recovered/Not Resolved]
  - Burning sensation [Unknown]
